FAERS Safety Report 19383976 (Version 2)
Quarter: 2021Q3

REPORT INFORMATION
  Report Type: Spontaneous
  Country: US (occurrence: US)
  Receive Date: 20210607
  Receipt Date: 20210728
  Transmission Date: 20211014
  Serious: Yes (Hospitalization, Other)
  Sender: FDA-Public Use
  Company Number: US-PFIZER INC-2021615171

PATIENT
  Age: 66 Year
  Sex: Female
  Weight: 74.83 kg

DRUGS (1)
  1. GABAPENTIN. [Suspect]
     Active Substance: GABAPENTIN
     Indication: MUSCLE SPASMS
     Dosage: 20 MG, TWICE A DAY

REACTIONS (6)
  - Peripheral swelling [Not Recovered/Not Resolved]
  - Crying [Unknown]
  - Off label use [Unknown]
  - Pain [Unknown]
  - Haemorrhage [Recovered/Resolved]
  - Pruritus [Unknown]

NARRATIVE: CASE EVENT DATE: 200505
